FAERS Safety Report 10236592 (Version 1)
Quarter: 2014Q2

REPORT INFORMATION
  Report Type: Spontaneous
  Country: CA (occurrence: CA)
  Receive Date: 20140613
  Receipt Date: 20140613
  Transmission Date: 20141212
  Serious: Yes (Hospitalization)
  Sender: FDA-Public Use
  Company Number: CA-ACTAVIS-2014-13218

PATIENT
  Age: 19 Year
  Sex: Male

DRUGS (3)
  1. ERYTHROMYCIN (UNKNOWN) [Suspect]
     Indication: PROPHYLAXIS
     Dosage: 800 MG 2 HOURS BEFORE PROCEDURE
     Route: 048
  2. ERYTHROMYCIN (UNKNOWN) [Interacting]
     Dosage: 400 MG, UNK, 6 HOURS AFTER THE INITIAL DOSE
     Route: 048
  3. PARACETAMOL W/CODEINE/CAFFEINE [Interacting]
     Indication: PRODUCT USED FOR UNKNOWN INDICATION
     Dosage: 1 OR 2 TABLETS EVERY 4 TO 6 HOURS, 30 TABLETS OVER THE COURSE OF 1 WEEK
     Route: 048

REACTIONS (3)
  - Mania [Recovered/Resolved]
  - Drug interaction [Recovered/Resolved]
  - Hallucination, visual [None]
